FAERS Safety Report 7141854-8 (Version None)
Quarter: 2010Q4

REPORT INFORMATION
  Report Type: 
  Country: None (occurrence: None)
  Receive Date: 20101207
  Receipt Date: 20101203
  Transmission Date: 20110411
  Serious: Yes (Hospitalization, Other)
  Sender: FDA-Public Use
  Company Number: PHHY2010BR37975

PATIENT
  Sex: Male

DRUGS (3)
  1. STALEVO 100 [Suspect]
     Indication: PARKINSON'S DISEASE
     Dosage: 100/25/200MG
     Route: 048
  2. PROLOPA [Concomitant]
     Indication: PARKINSON'S DISEASE
     Dosage: UNK
  3. IRON [Concomitant]
     Dosage: UNK

REACTIONS (4)
  - ABASIA [None]
  - DRUG DOSE OMISSION [None]
  - GASTROINTESTINAL TUBE INSERTION [None]
  - PARALYSIS [None]
